FAERS Safety Report 7671172-0 (Version None)
Quarter: 2011Q3

REPORT INFORMATION
  Report Type: 
  Country: None (occurrence: None)
  Receive Date: 20110803
  Receipt Date: 20110719
  Transmission Date: 20111222
  Serious: Yes (Hospitalization, Other)
  Sender: FDA-Public Use
  Company Number: 2011MA009089

PATIENT
  Age: 11 Year
  Sex: Male

DRUGS (6)
  1. VALPROIC ACID [Concomitant]
  2. PHENYTOIN [Concomitant]
  3. PHENOBARBITAL TAB [Suspect]
     Indication: CONVULSION
     Dosage: 30 MG/KG; QD; RTL
  4. CLOBAZAM [Concomitant]
  5. MIDAZOLAM HCL [Concomitant]
  6. TOPIRAMATE [Concomitant]

REACTIONS (2)
  - STEVENS-JOHNSON SYNDROME [None]
  - HEPATIC FUNCTION ABNORMAL [None]
